FAERS Safety Report 4815671-5 (Version None)
Quarter: 2005Q4

REPORT INFORMATION
  Report Type: 
  Country: None (occurrence: None)
  Receive Date: 20051031
  Receipt Date: 20020521
  Transmission Date: 20060501
  Serious: Yes (Hospitalization)
  Sender: FDA-Public Use
  Company Number: BG-ROCHE-313765

PATIENT
  Age: 19 Year
  Sex: Male
  Weight: 100 kg

DRUGS (2)
  1. PEG-INTERFERON ALFA 2A (RO 25-8310) [Suspect]
     Route: 058
     Dates: start: 20011016, end: 20020429
  2. RIBAVIRIN [Suspect]
     Route: 048
     Dates: start: 20011016, end: 20020429

REACTIONS (1)
  - NEPHROTIC SYNDROME [None]
